FAERS Safety Report 11380982 (Version 2)
Quarter: 2015Q3

REPORT INFORMATION
  Report Type: Spontaneous
  Country: US (occurrence: US)
  Receive Date: 20150814
  Receipt Date: 20150909
  Transmission Date: 20151125
  Serious: Yes (Other)
  Sender: FDA-Public Use
  Company Number: US-ASTRAZENECA-2015SE75454

PATIENT
  Age: 73 Year
  Sex: Female
  Weight: 67.1 kg

DRUGS (3)
  1. ARIMIDEX [Suspect]
     Active Substance: ANASTROZOLE
     Indication: BREAST CANCER FEMALE
     Route: 048
     Dates: start: 201411, end: 20150803
  2. ARIMIDEX [Suspect]
     Active Substance: ANASTROZOLE
     Indication: BREAST CANCER FEMALE
     Route: 048
  3. PROLIA [Suspect]
     Active Substance: DENOSUMAB
     Indication: OSTEOPENIA
     Dosage: ONE DOSE
     Route: 065
     Dates: start: 20150224

REACTIONS (9)
  - Back pain [Not Recovered/Not Resolved]
  - Chest pain [Unknown]
  - Gastrooesophageal reflux disease [Unknown]
  - Arthralgia [Unknown]
  - Cellulitis [Unknown]
  - Weight abnormal [Unknown]
  - Joint swelling [Unknown]
  - Extremity contracture [Unknown]
  - Osteopenia [Unknown]

NARRATIVE: CASE EVENT DATE: 2015
